FAERS Safety Report 6879387-6 (Version None)
Quarter: 2010Q3

REPORT INFORMATION
  Report Type: 
  Country: None (occurrence: None)
  Receive Date: 20100728
  Receipt Date: 20100108
  Transmission Date: 20110219
  Serious: No
  Sender: FDA-Public Use
  Company Number: US-ABBOTT-10P-163-0618947-00

PATIENT
  Age: 83 Year
  Sex: Female

DRUGS (5)
  1. SYNTHROID [Suspect]
     Indication: HYPOTHYROIDISM
     Dates: start: 20100101
  2. LOTREL [Concomitant]
     Indication: HYPERTENSION
     Dosage: DAILY
  3. TOPROL-XL [Concomitant]
     Indication: HYPERTENSION
     Dosage: DAILY
  4. LEXAPRO [Concomitant]
     Indication: ANXIETY
     Dosage: DAILY
  5. ACTONEL [Concomitant]
     Indication: BONE DENSITY DECREASED
     Dosage: DAILY

REACTIONS (2)
  - NERVOUSNESS [None]
  - PRURITUS [None]
